FAERS Safety Report 15889144 (Version 1)
Quarter: 2019Q1

REPORT INFORMATION
  Report Type: Other
  Country: BE (occurrence: BE)
  Receive Date: 20190130
  Receipt Date: 20190130
  Transmission Date: 20190417
  Serious: Yes (Hospitalization, Other)
  Sender: FDA-Public Use
  Company Number: BE-LEADING PHARMA, LLC-2061922

PATIENT
  Age: 21 Year
  Sex: Female

DRUGS (1)
  1. NIFEDIPINE. [Suspect]
     Active Substance: NIFEDIPINE
     Indication: TOCOLYSIS

REACTIONS (1)
  - Cardiogenic shock [Recovered/Resolved]
